FAERS Safety Report 16566691 (Version 2)
Quarter: 2019Q4

REPORT INFORMATION
  Report Type: Spontaneous
  Country: JP (occurrence: JP)
  Receive Date: 20190712
  Receipt Date: 20191002
  Transmission Date: 20200122
  Serious: Yes (Other)
  Sender: FDA-Public Use
  Company Number: JP-PFIZER INC-2019290655

PATIENT
  Age: 62 Year
  Sex: Male
  Weight: 184.6 kg

DRUGS (18)
  1. TRAMCET [Suspect]
     Active Substance: ACETAMINOPHEN\TRAMADOL
     Indication: MYELOPATHY
     Dosage: 2 DF, 3X/DAY
     Route: 048
     Dates: start: 20181211, end: 20181218
  2. WARFARIN [Suspect]
     Active Substance: WARFARIN
     Indication: DEEP VEIN THROMBOSIS
     Dosage: 5 MG, 1X/DAY
     Route: 048
     Dates: end: 20181226
  3. WARFARIN [Suspect]
     Active Substance: WARFARIN
     Dosage: 3 MG, 1X/DAY
     Route: 048
     Dates: start: 20181228, end: 20190107
  4. LYRICA [Suspect]
     Active Substance: PREGABALIN
     Indication: MYELOPATHY
     Dosage: 150 MG, 2X/DAY
     Route: 048
     Dates: start: 20181206, end: 20181218
  5. LYRICA [Suspect]
     Active Substance: PREGABALIN
     Dosage: 75 MG, 2X/DAY
     Route: 048
     Dates: start: 20181218, end: 20190115
  6. TRAMCET [Suspect]
     Active Substance: ACETAMINOPHEN\TRAMADOL
     Dosage: 1 DF, 4X/DAY
     Route: 048
     Dates: start: 20190130, end: 20190402
  7. TRAMCET [Suspect]
     Active Substance: ACETAMINOPHEN\TRAMADOL
     Dosage: 2 DF, 4X/DAY
     Route: 048
     Dates: start: 20181218, end: 20190130
  8. TRAMCET [Suspect]
     Active Substance: ACETAMINOPHEN\TRAMADOL
     Dosage: 1 DF, 2X/DAY
     Route: 048
     Dates: start: 20190402, end: 20190416
  9. CLARITIN REDITABS [Concomitant]
     Active Substance: LORATADINE
     Dosage: FROM 30 MG AND PROPERLY ADJUSTED, 2X/DAY
     Route: 048
  10. OLOPATADINE [OLOPATADINE HYDROCHLORIDE] [Concomitant]
     Dosage: FROM 10 MG AND PROPERLY ADJUSTED, 2X/DAY
     Route: 048
  11. XYLOCAINE [Concomitant]
     Active Substance: LIDOCAINE HYDROCHLORIDE
     Dosage: UNK
     Dates: start: 20181218, end: 20181218
  12. WARFARIN [Suspect]
     Active Substance: WARFARIN
     Dosage: 3.5 MG, 1X/DAY
     Route: 048
     Dates: start: 20190108, end: 20190204
  13. WARFARIN [Suspect]
     Active Substance: WARFARIN
     Dosage: 4.5 MG, 1X/DAY
     Dates: start: 20190226, end: 20190310
  14. ALEVIATIN [PHENYTOIN] [Concomitant]
     Active Substance: PHENYTOIN
     Dosage: 300 MG, DAILY (200 MG IN THE MORNING, 100 MG IN THE EVENING
  15. WARFARIN [Suspect]
     Active Substance: WARFARIN
     Dosage: 4 MG, 1X/DAY
     Route: 048
     Dates: start: 20190205, end: 20190225
  16. FAMOTIDINE. [Concomitant]
     Active Substance: FAMOTIDINE
     Dosage: FROM 20 MG AND PROPERLY ADJUSTED, 2X/DAY
     Route: 048
  17. ONON [Concomitant]
     Active Substance: PRANLUKAST
     Dosage: FROM 225 MG AND PROPERLY ADJUSTED, 2X/DAY
     Route: 048
  18. RINDERON [BETAMETHASONE SODIUM PHOSPHATE] [Concomitant]
     Active Substance: BETAMETHASONE SODIUM PHOSPHATE
     Dosage: UNK
     Dates: start: 20181218, end: 20181218

REACTIONS (2)
  - Condition aggravated [Recovered/Resolved]
  - International normalised ratio increased [Recovered/Resolved]

NARRATIVE: CASE EVENT DATE: 20181206
